FAERS Safety Report 9123262 (Version 1)
Quarter: 2013Q1

REPORT INFORMATION
  Report Type: Spontaneous
  Country: US (occurrence: US)
  Receive Date: 20130227
  Receipt Date: 20130227
  Transmission Date: 20140127
  Serious: Yes (Other)
  Sender: FDA-Public Use
  Company Number: US-ELI_LILLY_AND_COMPANY-US201203002825

PATIENT
  Age: 84 Year
  Sex: Female

DRUGS (3)
  1. FORTEO [Suspect]
     Indication: OSTEOPOROSIS
     Dosage: 20 UG, QD
     Route: 065
     Dates: start: 20120302
  2. FORTEO [Suspect]
     Dosage: 20 UG, QD
     Route: 065
     Dates: end: 20120519
  3. FORTEO [Suspect]
     Dosage: 20 UG, QD
     Route: 065
     Dates: end: 201208

REACTIONS (17)
  - Pelvic fracture [Unknown]
  - Fall [Unknown]
  - Blood pressure decreased [Unknown]
  - Tendonitis [Unknown]
  - Fatigue [Unknown]
  - Sensory disturbance [Unknown]
  - Pain in extremity [Not Recovered/Not Resolved]
  - Abdominal discomfort [Recovered/Resolved]
  - Anxiety [Unknown]
  - Joint swelling [Unknown]
  - Myalgia [Recovering/Resolving]
  - Weight bearing difficulty [Unknown]
  - Arthralgia [Recovering/Resolving]
  - Arthralgia [Recovered/Resolved]
  - Constipation [Unknown]
  - Blood calcium increased [Unknown]
  - Obstruction [Unknown]
